FAERS Safety Report 8511884 (Version 3)
Quarter: 2015Q3

REPORT INFORMATION
  Report Type: Report from Study
  Country: US (occurrence: US)
  Receive Date: 20120413
  Receipt Date: 20150727
  Transmission Date: 20151125
  Serious: No
  Sender: FDA-Public Use
  Company Number: US-ASTRAZENECA-2011SE53479

PATIENT
  Age: 24487 Day
  Sex: Female
  Weight: 99.8 kg

DRUGS (9)
  1. ZETIA [Concomitant]
     Active Substance: EZETIMIBE
  2. METFORMIN [Concomitant]
     Active Substance: METFORMIN HYDROCHLORIDE
  3. NEXIUM [Suspect]
     Active Substance: ESOMEPRAZOLE MAGNESIUM
     Indication: DYSPEPSIA
     Dosage: DOSE UNKNOWN
     Route: 048
  4. SERTRALINE [Concomitant]
     Active Substance: SERTRALINE HYDROCHLORIDE
  5. XOLOFT [Concomitant]
  6. SIMVASTATIN. [Concomitant]
     Active Substance: SIMVASTATIN
  7. NEXIUM [Suspect]
     Active Substance: ESOMEPRAZOLE MAGNESIUM
     Indication: DYSPEPSIA
     Route: 048
     Dates: start: 20150708
  8. TOPROL XL [Suspect]
     Active Substance: METOPROLOL SUCCINATE
     Route: 048
  9. LISINOPRIL. [Suspect]
     Active Substance: LISINOPRIL
     Route: 048

REACTIONS (9)
  - Product use issue [Unknown]
  - Influenza [Unknown]
  - Drug dose omission [Not Recovered/Not Resolved]
  - Depression [Unknown]
  - Blood cholesterol increased [Unknown]
  - Hypertension [Unknown]
  - Off label use [Unknown]
  - Intentional product misuse [Not Recovered/Not Resolved]
  - Diabetes mellitus [Unknown]

NARRATIVE: CASE EVENT DATE: 20150609
